FAERS Safety Report 19728567 (Version 2)
Quarter: 2021Q4

REPORT INFORMATION
  Report Type: Report from Study
  Country: US (occurrence: US)
  Receive Date: 20210820
  Receipt Date: 20211005
  Transmission Date: 20220303
  Serious: Yes (Other)
  Sender: FDA-Public Use
  Company Number: US-SA-SAC20210730001268

PATIENT
  Age: 80 Year
  Sex: Female

DRUGS (2)
  1. DUPILUMAB [Suspect]
     Active Substance: DUPILUMAB
     Indication: Dermatitis atopic
     Dosage: 300 MG, QOW
     Route: 058
     Dates: start: 20210507
  2. PREDNISOLONE [Suspect]
     Active Substance: PREDNISOLONE

REACTIONS (5)
  - Cellulitis [Recovering/Resolving]
  - Swelling face [Recovering/Resolving]
  - Eye swelling [Unknown]
  - Swelling [Recovering/Resolving]
  - Hordeolum [Unknown]
